FAERS Safety Report 9433925 (Version 2)
Quarter: 2013Q3

REPORT INFORMATION
  Report Type: Spontaneous
  Country: FI (occurrence: FI)
  Receive Date: 20130801
  Receipt Date: 20130804
  Transmission Date: 20140515
  Serious: Yes (Life-Threatening)
  Sender: FDA-Public Use
  Company Number: FI-ROCHE-1255489

PATIENT
  Age: 59 Year
  Sex: Male

DRUGS (5)
  1. LARIAM [Suspect]
     Indication: MALARIA PROPHYLAXIS
     Route: 048
     Dates: start: 20130506, end: 20130723
  2. SOLU-MEDROL [Concomitant]
     Route: 042
  3. ROXITHROMYCIN [Concomitant]
  4. CEFUROXIME [Concomitant]
  5. TAVANIC [Concomitant]

REACTIONS (2)
  - Acute respiratory distress syndrome [Recovering/Resolving]
  - Alveolitis allergic [Recovering/Resolving]
